FAERS Safety Report 26193720 (Version 1)
Quarter: 2025Q4

REPORT INFORMATION
  Report Type: Spontaneous
  Country: JP (occurrence: JP)
  Receive Date: 20251224
  Receipt Date: 20251224
  Transmission Date: 20260119
  Serious: Yes (Other)
  Sender: SANDOZ
  Company Number: JP-asahikaseip-2025-AER-07620

PATIENT
  Sex: Female

DRUGS (10)
  1. RECLAST [Suspect]
     Active Substance: ZOLEDRONIC ACID
     Indication: Product used for unknown indication
     Dosage: 5 MG, Q12MO
     Dates: start: 20250513
  2. TERIPARATIDE ACETATE [Suspect]
     Active Substance: TERIPARATIDE ACETATE
     Indication: Product used for unknown indication
     Dosage: 56.500UG WEEK
  3. AMLODIPINE [Concomitant]
     Active Substance: AMLODIPINE BESYLATE
     Indication: Product used for unknown indication
     Dosage: UNK
  4. ENTRESTO [Concomitant]
     Active Substance: SACUBITRIL\VALSARTAN
     Indication: Product used for unknown indication
     Dosage: UNK
  5. CLOPIDOGREL [Concomitant]
     Active Substance: CLOPIDOGREL BISULFATE
     Indication: Product used for unknown indication
     Dosage: UNK
  6. CRESTOR [Concomitant]
     Active Substance: ROSUVASTATIN CALCIUM
     Indication: Product used for unknown indication
     Dosage: UNK
  7. Marzulene [Concomitant]
     Indication: Abdominal discomfort
     Dosage: UNK, {ASNECESSARY}
  8. VONOPRAZAN FUMARATE [Concomitant]
     Active Substance: VONOPRAZAN FUMARATE
     Indication: Physical deconditioning
     Dosage: UNK
  9. VONOPRAZAN FUMARATE [Concomitant]
     Active Substance: VONOPRAZAN FUMARATE
     Indication: Abdominal discomfort
  10. ACOTIAMIDE HYDROCHLORIDE [Concomitant]
     Active Substance: ACOTIAMIDE HYDROCHLORIDE
     Indication: Product used for unknown indication
     Dosage: UNK

REACTIONS (22)
  - Fracture [Unknown]
  - Physical deconditioning [Unknown]
  - Chest discomfort [Unknown]
  - Fall [Unknown]
  - Internal haemorrhage [Unknown]
  - Feeling abnormal [Unknown]
  - Blood iron decreased [Unknown]
  - Dehydration [Unknown]
  - Dysuria [Unknown]
  - Cystitis [Unknown]
  - Blood calcium decreased [Unknown]
  - Back disorder [Unknown]
  - Heat illness [Unknown]
  - Vascular stenosis [Unknown]
  - Helicobacter infection [Unknown]
  - Abdominal discomfort [Unknown]
  - Anxiety [Unknown]
  - Anxiety [Unknown]
  - Arthralgia [Unknown]
  - Dizziness [Unknown]
  - Nausea [Unknown]
  - Back pain [Unknown]
